FAERS Safety Report 14382216 (Version 1)
Quarter: 2018Q1

REPORT INFORMATION
  Report Type: Spontaneous
  Country: CA (occurrence: CA)
  Receive Date: 20180112
  Receipt Date: 20180112
  Transmission Date: 20180509
  Serious: Yes (Death, Other)
  Sender: FDA-Public Use
  Company Number: CA-CELGENEUS-CAN-20180103242

PATIENT
  Age: 67 Year
  Sex: Male
  Weight: 82 kg

DRUGS (1)
  1. REVLIMID [Suspect]
     Active Substance: LENALIDOMIDE
     Indication: PLASMA CELL MYELOMA
     Dosage: 25 MILLIGRAM
     Route: 048
     Dates: start: 20161222, end: 20171217

REACTIONS (2)
  - Haemorrhage intracranial [Fatal]
  - Fall [Unknown]

NARRATIVE: CASE EVENT DATE: 20171217
